FAERS Safety Report 17638687 (Version 1)
Quarter: 2020Q2

REPORT INFORMATION
  Report Type: Spontaneous
  Country: TW (occurrence: TW)
  Receive Date: 20200407
  Receipt Date: 20200407
  Transmission Date: 20200713
  Serious: Yes (Death, Other)
  Sender: FDA-Public Use
  Company Number: TW-GUERBET-TW-20200003

PATIENT
  Age: 85 Year
  Sex: Male

DRUGS (1)
  1. LIPIODOL [Suspect]
     Active Substance: ETHIODIZED OIL
     Indication: THERAPEUTIC EMBOLISATION
     Route: 013

REACTIONS (9)
  - Dyspnoea [Unknown]
  - Anaemia [Unknown]
  - Acidosis [Fatal]
  - Product use in unapproved indication [Fatal]
  - Tumour rupture [Unknown]
  - Shock [Fatal]
  - Tachycardia [Unknown]
  - Pulmonary embolism [Fatal]
  - Hypoxic-ischaemic encephalopathy [Fatal]
